FAERS Safety Report 7640916-6 (Version None)
Quarter: 2011Q3

REPORT INFORMATION
  Report Type: 
  Country: None (occurrence: None)
  Receive Date: 20110728
  Receipt Date: 20110728
  Transmission Date: 20111222
  Serious: Yes (Other)
  Sender: FDA-Public Use
  Company Number: None

PATIENT
  Age: 70 Year
  Sex: Female
  Weight: 70.306 kg

DRUGS (2)
  1. HIBICLENS [Suspect]
     Indication: INFECTION PROPHYLAXIS
     Route: 061
     Dates: start: 20110320, end: 20110321
  2. HIBICLENS [Suspect]
     Indication: PREOPERATIVE CARE
     Route: 061
     Dates: start: 20110320, end: 20110321

REACTIONS (2)
  - URTICARIA [None]
  - RASH [None]
